FAERS Safety Report 17591808 (Version 1)
Quarter: 2020Q1

REPORT INFORMATION
  Report Type: Spontaneous
  Country: US (occurrence: US)
  Receive Date: 20200327
  Receipt Date: 20200327
  Transmission Date: 20200409
  Serious: No
  Sender: FDA-Public Use
  Company Number: US-SIGMAPHARM LABORATORIES, LLC-2020SIG00018

PATIENT
  Age: 75 Year
  Sex: Female
  Weight: 58.96 kg

DRUGS (9)
  1. DOFETILIDE. [Suspect]
     Active Substance: DOFETILIDE
     Dosage: 0.25 MG, 1X/DAY
     Route: 048
     Dates: start: 202002
  2. DOFETILIDE. [Suspect]
     Active Substance: DOFETILIDE
     Indication: ATRIAL FIBRILLATION
     Dosage: 0.25 MG, 2X/DAY
     Route: 048
     Dates: start: 20200125, end: 202002
  3. ATORVASTATIN [Concomitant]
     Active Substance: ATORVASTATIN
  4. SPIRIVA [Concomitant]
     Active Substance: TIOTROPIUM BROMIDE MONOHYDRATE
     Route: 055
  5. ELIQUIS [Suspect]
     Active Substance: APIXABAN
     Dosage: 2.5 MG, 1X/DAY
  6. XANAX [Concomitant]
     Active Substance: ALPRAZOLAM
     Dosage: SMALLEST DOSE
  7. ELIQUIS [Suspect]
     Active Substance: APIXABAN
     Dosage: 2.5 MG, 2X/DAY
  8. SYNTHROID [Concomitant]
     Active Substance: LEVOTHYROXINE SODIUM
     Dosage: 25 ?G, 1X/DAY
  9. PARNATE [Concomitant]
     Active Substance: TRANYLCYPROMINE SULFATE

REACTIONS (9)
  - Palpitations [Recovered/Resolved]
  - Abdominal pain upper [Recovered/Resolved]
  - Cough [Recovering/Resolving]
  - Intentional product use issue [Not Recovered/Not Resolved]
  - Diarrhoea [Recovering/Resolving]
  - Sinusitis [Recovering/Resolving]
  - Decreased appetite [Recovering/Resolving]
  - Product dose omission [Recovered/Resolved]
  - Product substitution issue [Not Recovered/Not Resolved]

NARRATIVE: CASE EVENT DATE: 202001
